FAERS Safety Report 4918769-6 (Version None)
Quarter: 2006Q1

REPORT INFORMATION
  Report Type: 
  Country: None (occurrence: None)
  Receive Date: 20060222
  Receipt Date: 20051122
  Transmission Date: 20060701
  Serious: Yes (Death, Hospitalization)
  Sender: FDA-Public Use
  Company Number: GBWYE162922NOV05

PATIENT
  Sex: Female
  Weight: 71 kg

DRUGS (10)
  1. ENBREL [Suspect]
     Indication: RHEUMATOID ARTHRITIS
     Dosage: 25MG, FREQUENCY UNKNOWN
     Route: 058
     Dates: start: 20030515, end: 20050913
  2. FOLIC ACID [Concomitant]
     Indication: PROPHYLAXIS
     Dosage: 5MG, FREQUENCY UNKNOWN
     Route: 065
  3. PREDNISOLONE [Concomitant]
     Indication: RHEUMATOID ARTHRITIS
     Dosage: 5/2.5G ALTERNATE DAYS
     Route: 065
  4. INDAPAMIDE [Concomitant]
     Dosage: 2.5MG, FREQUENCY UNKNOWN
     Route: 065
  5. RANITIDINE [Concomitant]
     Indication: PROPHYLAXIS
     Dosage: 150MG, FREQUENCY UNKNOWN
     Route: 065
  6. METHOTREXATE [Concomitant]
     Route: 065
     Dates: start: 20040210
  7. ATENOLOL [Concomitant]
     Route: 065
  8. CO-PROXAMOL [Concomitant]
     Route: 065
  9. LOSARTAN POTASSIUM [Concomitant]
     Route: 065
  10. HEPARIN [Concomitant]
     Route: 058

REACTIONS (4)
  - LOBAR PNEUMONIA [None]
  - METASTASES TO LIVER [None]
  - METASTASES TO LUNG [None]
  - METASTATIC RENAL CELL CARCINOMA [None]
